FAERS Safety Report 4603900-2 (Version None)
Quarter: 2005Q1

REPORT INFORMATION
  Report Type: 
  Country: None (occurrence: None)
  Receive Date: 20050310
  Receipt Date: 20050228
  Transmission Date: 20050727
  Serious: Yes (Other)
  Sender: FDA-Public Use
  Company Number: FR-ROCHE-396727

PATIENT
  Age: 28 Year
  Sex: Female

DRUGS (4)
  1. LOXEN LP [Suspect]
     Indication: PREMATURE LABOUR
     Route: 048
     Dates: start: 20041004, end: 20041223
  2. TARDYFERON B9 [Concomitant]
  3. MAGNE-B(6) [Concomitant]
  4. SPASFON [Concomitant]

REACTIONS (3)
  - CAESAREAN SECTION [None]
  - DRUG EXPOSURE DURING PREGNANCY [None]
  - HYPERTENSIVE CRISIS [None]
